FAERS Safety Report 7151221-9 (Version None)
Quarter: 2010Q4

REPORT INFORMATION
  Report Type: 
  Country: None (occurrence: None)
  Receive Date: 20101210
  Receipt Date: 20101201
  Transmission Date: 20110411
  Serious: Yes (Other)
  Sender: FDA-Public Use
  Company Number: GB-JNJFOC-20101200983

PATIENT
  Age: 64 Year
  Sex: Female

DRUGS (12)
  1. PARACETAMOL [Suspect]
  2. PARACETAMOL [Suspect]
     Indication: PAIN
  3. SOLPADOL [Suspect]
     Indication: PAIN
  4. BISOPROLOL [Concomitant]
     Indication: CARDIAC DISORDER
  5. FERROUS SULFATE TAB [Concomitant]
  6. FUROSEMIDE [Concomitant]
  7. LANSOPRAZOLE [Concomitant]
  8. LEVOTHYROXINE SODIUM [Concomitant]
  9. RAMIPRIL [Concomitant]
  10. SPIRONOLACTONE [Concomitant]
  11. WARFARIN SODIUM [Concomitant]
     Indication: HEART VALVE REPLACEMENT
  12. WARFARIN SODIUM [Concomitant]
     Indication: CARDIAC DISORDER

REACTIONS (2)
  - ABDOMINAL PAIN [None]
  - ABDOMINAL PAIN UPPER [None]
